FAERS Safety Report 5860918-X (Version None)
Quarter: 2008Q3

REPORT INFORMATION
  Report Type: 
  Country: None (occurrence: None)
  Receive Date: 20080827
  Receipt Date: 20071221
  Transmission Date: 20090109
  Serious: No
  Sender: FDA-Public Use
  Company Number: US-ABBOTT-08P-163-0432371-00

PATIENT
  Sex: Male
  Weight: 100 kg

DRUGS (13)
  1. COATED PDS [Suspect]
     Indication: HIGH DENSITY LIPOPROTEIN DECREASED
     Route: 048
     Dates: start: 20050801
  2. COATED PDS [Suspect]
     Route: 048
     Dates: start: 20070601
  3. ACETYLSALICYLIC ACID SRT [Concomitant]
     Indication: ATRIAL FIBRILLATION
     Route: 048
  4. CARVEDILOL [Concomitant]
     Indication: ATRIAL FIBRILLATION
     Route: 048
  5. LEVOTHYROXINE SODIUM [Concomitant]
     Indication: HYPOTHYROIDISM
     Route: 048
  6. CELECOXIB [Concomitant]
     Indication: ARTHRITIS
     Route: 048
  7. RAMIPRIL [Concomitant]
     Indication: DRUG USE FOR UNKNOWN INDICATION
     Route: 048
  8. TRICORE [Concomitant]
     Indication: BLOOD CHOLESTEROL
     Route: 048
  9. FISH OIL [Concomitant]
     Indication: DRUG USE FOR UNKNOWN INDICATION
     Route: 048
  10. CENTRUM SILVER [Concomitant]
     Indication: DRUG USE FOR UNKNOWN INDICATION
     Route: 048
  11. SPIVIRA [Concomitant]
     Indication: ASTHMA
     Route: 055
  12. FLUTICASONE PROPIONATE [Concomitant]
     Indication: SEASONAL ALLERGY
     Route: 055
  13. MORNIFLUMATE [Concomitant]
     Indication: DRUG USE FOR UNKNOWN INDICATION

REACTIONS (2)
  - DRUG INEFFECTIVE [None]
  - HEADACHE [None]
